FAERS Safety Report 14330651 (Version 2)
Quarter: 2018Q1

REPORT INFORMATION
  Report Type: Report from Study
  Country: None (occurrence: BR)
  Receive Date: 20171228
  Receipt Date: 20180102
  Transmission Date: 20180509
  Serious: Yes (Other)
  Sender: FDA-Public Use
  Company Number: BR-ABBVIE-17K-020-2205332-00

PATIENT
  Age: 65 Year
  Sex: Male
  Weight: 93 kg

DRUGS (7)
  1. HUMIRA [Suspect]
     Active Substance: ADALIMUMAB
     Indication: RHEUMATOID ARTHRITIS
     Route: 058
     Dates: start: 20100103
  2. BENICAR [Concomitant]
     Active Substance: OLMESARTAN MEDOXOMIL
     Indication: HYPERTENSION
  3. HIGROTON [Concomitant]
     Active Substance: CHLORTHALIDONE
     Indication: HYPERTENSION
  4. ALDACTONE [Concomitant]
     Active Substance: SPIRONOLACTONE
     Indication: HYPERTENSION
  5. AZUKON [Concomitant]
     Active Substance: GLICLAZIDE
     Indication: DIABETES MELLITUS
  6. LANTUS [Concomitant]
     Active Substance: INSULIN GLARGINE
     Indication: DIABETES MELLITUS
  7. APIDRA [Concomitant]
     Active Substance: INSULIN GLULISINE
     Indication: DIABETES MELLITUS

REACTIONS (5)
  - Periodontitis [Recovered/Resolved]
  - Osteoarthritis [Recovered/Resolved]
  - Oral pain [Not Recovered/Not Resolved]
  - Mouth injury [Not Recovered/Not Resolved]
  - Speech disorder [Not Recovered/Not Resolved]

NARRATIVE: CASE EVENT DATE: 201702
